FAERS Safety Report 10516722 (Version 1)
Quarter: 2014Q2

REPORT INFORMATION
  Report Type: Spontaneous
  Country: US (occurrence: None)
  Receive Date: 20140626
  Receipt Date: 20140626
  Transmission Date: 20141212
  Serious: Yes (Hospitalization)
  Sender: FDA-Public Use
  Company Number: 1713747-2014-99934

PATIENT
  Age: 43 Year
  Sex: Male

DRUGS (1)
  1. DELFLEX 1.5% DEX.LM/LC 5L, 2-PK CATALOG#: 044-50521 [Suspect]
     Indication: RENAL FAILURE CHRONIC
     Dosage: OVERNIGHT CYCLING

REACTIONS (2)
  - Peritonitis [None]
  - Product quality issue [None]
